FAERS Safety Report 8366293-3 (Version None)
Quarter: 2012Q2

REPORT INFORMATION
  Report Type: 
  Country: None (occurrence: None)
  Receive Date: 20120517
  Receipt Date: 20120514
  Transmission Date: 20120825
  Serious: Yes (Other)
  Sender: FDA-Public Use
  Company Number: PHEH2011US00479

PATIENT
  Sex: Female

DRUGS (10)
  1. ZOMETA [Suspect]
  2. PROTONIX [Concomitant]
     Dosage: 40 MG, QD
  3. OXYCONTIN [Concomitant]
     Dosage: 80 MG,
  4. NEXIUM [Concomitant]
  5. DIOVAN HCT [Concomitant]
     Dosage: 1 DF(80/12.5 MG PRN)
  6. COMPAZINE [Concomitant]
     Dosage: 10 MG, PRN
  7. REGLAN [Concomitant]
     Dosage: 10 MG, TID
  8. CELEBREX [Concomitant]
     Dosage: 200 MG, BID
  9. BACLOFEN [Concomitant]
  10. TOPAMAX [Concomitant]

REACTIONS (40)
  - PAIN [None]
  - INFECTION [None]
  - INJURY [None]
  - ANXIETY [None]
  - CYSTITIS [None]
  - CONSTIPATION [None]
  - CARDIOMEGALY [None]
  - CARPAL TUNNEL SYNDROME [None]
  - GASTRITIS EROSIVE [None]
  - GLAUCOMA [None]
  - JOINT SWELLING [None]
  - DEPRESSION [None]
  - WEIGHT INCREASED [None]
  - HIATUS HERNIA [None]
  - BREAST MASS [None]
  - MIGRAINE [None]
  - TREMOR [None]
  - ACQUIRED OESOPHAGEAL WEB [None]
  - VITAMIN B1 DEFICIENCY [None]
  - DEFORMITY [None]
  - CHONDROMALACIA [None]
  - DIZZINESS [None]
  - RASH [None]
  - OSTEONECROSIS OF JAW [None]
  - MOUTH ULCERATION [None]
  - MUCOEPIDERMOID CARCINOMA [None]
  - OESOPHAGEAL DILATATION [None]
  - HEPATIC STEATOSIS [None]
  - ORAL NEOPLASM [None]
  - VISION BLURRED [None]
  - DYSPHAGIA [None]
  - PANCREATIC CARCINOMA [None]
  - EMOTIONAL DISTRESS [None]
  - OVARIAN CANCER STAGE I [None]
  - IRRITABLE BOWEL SYNDROME [None]
  - FIBROMYALGIA [None]
  - SPINAL OSTEOARTHRITIS [None]
  - NEPHROLITHIASIS [None]
  - OESOPHAGEAL STENOSIS [None]
  - DIABETES MELLITUS [None]
